FAERS Safety Report 8842246 (Version 1)
Quarter: 2012Q4

REPORT INFORMATION
  Report Type: 
  Country: BE (occurrence: BE)
  Receive Date: 20121016
  Receipt Date: 20121016
  Transmission Date: 20130627
  Serious: Yes (Other)
  Sender: FDA-Public Use
  Company Number: BE-SANOFI-AVENTIS-2012SA053373

PATIENT
  Age: 69 Year
  Sex: Female

DRUGS (9)
  1. CLEXANE [Suspect]
     Indication: DRUG USE FOR UNKNOWN INDICATION
     Route: 065
     Dates: start: 20120524
  2. TAXOTERE [Suspect]
     Indication: BREAST CANCER
     Dosage: Form - Vial, 83% of dose
     Route: 065
     Dates: start: 20120510, end: 20120510
  3. TAXOTERE [Suspect]
     Indication: BREAST CANCER
     Dosage: Form - Vial
     Route: 065
     Dates: start: 20120524, end: 20120524
  4. TAXOTERE [Suspect]
     Indication: BREAST CANCER
     Dosage: Form - Vial
     Route: 065
     Dates: start: 20120621, end: 20120621
  5. TAXOTERE [Suspect]
     Indication: BREAST CANCER
     Dosage: Form - Vial
     Route: 065
     Dates: start: 20120712, end: 20120712
  6. TRASTUZUMAB [Concomitant]
     Dates: start: 20120510, end: 20120510
  7. TRASTUZUMAB [Concomitant]
     Dates: start: 20120524, end: 20120524
  8. TRASTUZUMAB [Concomitant]
     Dates: start: 20120621, end: 20120621
  9. TRASTUZUMAB [Concomitant]
     Dates: start: 20120712, end: 20120712

REACTIONS (17)
  - Toxic skin eruption [Recovered/Resolved]
  - Erythema [Recovered/Resolved]
  - Burning sensation [Recovered/Resolved]
  - Rash [Recovered/Resolved]
  - Pyrexia [Recovered/Resolved]
  - Chills [Recovered/Resolved]
  - Myalgia [Recovered/Resolved]
  - Polyneuropathy [Unknown]
  - Lacrimation increased [Unknown]
  - Cystitis [Unknown]
  - Dysuria [Unknown]
  - Extravasation [Unknown]
  - Hypertension [Unknown]
  - Ageusia [Unknown]
  - Alopecia [Unknown]
  - Vomiting [Unknown]
  - Haematoma [Unknown]
